FAERS Safety Report 10905761 (Version 1)
Quarter: 2015Q1

REPORT INFORMATION
  Report Type: Spontaneous
  Country: US (occurrence: US)
  Receive Date: 20150311
  Receipt Date: 20150311
  Transmission Date: 20150721
  Serious: No
  Sender: FDA-Public Use
  Company Number: US-BAUSCH-BL-2014-006885

PATIENT
  Sex: Male

DRUGS (1)
  1. TUSSICAPS [Suspect]
     Active Substance: CHLORPHENIRAMINE\CHLORPHENIRAMINE MALEATE\HYDROCODONE\HYDROCODONE BITARTRATE
     Indication: PRODUCT USED FOR UNKNOWN INDICATION
     Route: 048

REACTIONS (1)
  - Blister [Unknown]
